FAERS Safety Report 11117369 (Version 2)
Quarter: 2015Q2

REPORT INFORMATION
  Report Type: Spontaneous
  Country: US (occurrence: US)
  Receive Date: 20150516
  Receipt Date: 20150616
  Transmission Date: 20150821
  Serious: Yes (Other)
  Sender: FDA-Public Use
  Company Number: ALCN2015US003025

PATIENT

DRUGS (1)
  1. BSS [Suspect]
     Active Substance: CALCIUM CHLORIDE\MAGNESIUM CHLORIDE\POTASSIUM CHLORIDE\SODIUM ACETATE\SODIUM CHLORIDE\SODIUM CITRATE
     Indication: VITRECTOMY
     Dosage: UNK
     Route: 047
     Dates: start: 20150505, end: 20150505

REACTIONS (1)
  - Eye operation complication [Recovered/Resolved]

NARRATIVE: CASE EVENT DATE: 20150505
